FAERS Safety Report 9437779 (Version 1)
Quarter: 2013Q3

REPORT INFORMATION
  Report Type: Spontaneous
  Country: US (occurrence: US)
  Receive Date: 20130802
  Receipt Date: 20130802
  Transmission Date: 20140515
  Serious: Yes (Hospitalization)
  Sender: FDA-Public Use
  Company Number: US-BRISTOL-MYERS SQUIBB COMPANY-17433376

PATIENT
  Age: 77 Year
  Sex: Male

DRUGS (11)
  1. SPRYCEL (CML) TABS 100 MG [Suspect]
  2. WARFARIN SODIUM [Suspect]
  3. CLOPIDOGREL BISULFATE [Suspect]
  4. LOSARTAN [Concomitant]
  5. OMEPRAZOLE [Concomitant]
  6. FINASTERIDE [Concomitant]
  7. SIMVASTATIN [Concomitant]
  8. FUROSEMIDE [Concomitant]
  9. VITAMIN D [Concomitant]
  10. KLOR-CON [Concomitant]
  11. LISINOPRIL [Concomitant]

REACTIONS (2)
  - Rectal haemorrhage [Unknown]
  - Fluid retention [Unknown]
